FAERS Safety Report 5705097-4 (Version None)
Quarter: 2008Q2

REPORT INFORMATION
  Report Type: 
  Country: None (occurrence: None)
  Receive Date: 20080414
  Receipt Date: 20080402
  Transmission Date: 20081010
  Serious: Yes (Hospitalization, Disabling)
  Sender: FDA-Public Use
  Company Number: CZ-ABBOTT-08P-217-0446676-00

PATIENT
  Sex: Female

DRUGS (4)
  1. FENOFIBRATE [Suspect]
     Indication: DYSLIPIDAEMIA
     Route: 065
     Dates: start: 20071029, end: 20071114
  2. FENOFIBRATE [Suspect]
     Route: 048
     Dates: start: 20071114, end: 20080317
  3. ATORVASTATIN [Interacting]
     Indication: MYOCARDIAL INFARCTION
     Route: 048
     Dates: start: 20050727, end: 20070901
  4. ATORVASTATIN [Interacting]
     Route: 048
     Dates: start: 20080222, end: 20080317

REACTIONS (9)
  - ACUTE MYOCARDIAL INFARCTION [None]
  - BLOOD CREATINE PHOSPHOKINASE INCREASED [None]
  - DRUG INTERACTION [None]
  - IMMOBILE [None]
  - IMPAIRED SELF-CARE [None]
  - MUSCULAR WEAKNESS [None]
  - MYOGLOBIN BLOOD INCREASED [None]
  - MYOPATHY [None]
  - RHABDOMYOLYSIS [None]
